FAERS Safety Report 6092661-9 (Version None)
Quarter: 2009Q1

REPORT INFORMATION
  Report Type: 
  Country: None (occurrence: None)
  Receive Date: 20090225
  Receipt Date: 20090212
  Transmission Date: 20090719
  Serious: Yes (Other)
  Sender: FDA-Public Use
  Company Number: PHHY2009BR05163

PATIENT
  Age: 64 Year
  Sex: Female

DRUGS (5)
  1. DIOVAN HCT [Suspect]
     Indication: HYPERTENSION
     Dosage: 1 TABLET (160/12.5 MG) IN THE MORNING
     Route: 048
  2. MAREVAN ^BRITISH DRUG HOUSES^ [Concomitant]
     Indication: ANTICOAGULANT THERAPY
  3. ANCORON [Concomitant]
     Indication: CARDIAC DISORDER
  4. PIASCLEDINE                        /01305801/ [Concomitant]
     Indication: BONE PAIN
  5. SIMVASTATIN [Concomitant]
     Indication: BLOOD CHOLESTEROL INCREASED

REACTIONS (2)
  - ARRHYTHMIA [None]
  - BLOOD PRESSURE INCREASED [None]
